FAERS Safety Report 9403311 (Version 1)
Quarter: 2013Q3

REPORT INFORMATION
  Report Type: Spontaneous
  Country: DE (occurrence: DE)
  Receive Date: 20130716
  Receipt Date: 20130716
  Transmission Date: 20140515
  Serious: Yes (Death, Hospitalization, Other)
  Sender: FDA-Public Use
  Company Number: DE-ABBOTT-13P-062-1118806-00

PATIENT
  Age: 58 Year
  Sex: Female
  Weight: 70 kg

DRUGS (3)
  1. HUMIRA [Suspect]
     Indication: RHEUMATOID ARTHRITIS
     Route: 058
     Dates: start: 2011
  2. MTX [Suspect]
     Indication: RHEUMATOID ARTHRITIS
     Route: 058
     Dates: start: 2011
  3. PREDNISOLON [Concomitant]
     Indication: PRODUCT USED FOR UNKNOWN INDICATION

REACTIONS (25)
  - Fatigue [Unknown]
  - General physical health deterioration [Unknown]
  - Dizziness [Unknown]
  - Circulatory collapse [Unknown]
  - Pulmonary mass [Unknown]
  - Respiratory disorder [Unknown]
  - Cognitive disorder [Unknown]
  - Condition aggravated [Unknown]
  - Body temperature increased [Unknown]
  - Inflammation [Unknown]
  - Circulatory collapse [Unknown]
  - Multi-organ failure [Unknown]
  - Hepatic failure [Unknown]
  - Renal failure [Unknown]
  - Liver function test abnormal [Unknown]
  - Respiratory failure [Unknown]
  - Hypoglycaemia [Unknown]
  - Blood albumin decreased [Unknown]
  - Prothrombin time prolonged [Unknown]
  - Antithrombin III [Unknown]
  - Disseminated tuberculosis [Fatal]
  - Infection [Unknown]
  - Oedema peripheral [Unknown]
  - Mycobacterial infection [Unknown]
  - Lung infection [Unknown]
